FAERS Safety Report 23668396 (Version 1)
Quarter: 2024Q1

REPORT INFORMATION
  Report Type: Spontaneous
  Country: US (occurrence: US)
  Receive Date: 20240325
  Receipt Date: 20240325
  Transmission Date: 20240410
  Serious: Yes (Hospitalization, Other)
  Sender: FDA-Public Use
  Company Number: US-FreseniusKabi-FK202404385

PATIENT
  Age: 69 Year
  Sex: Male
  Weight: 79.61 kg

DRUGS (12)
  1. MESNA [Suspect]
     Active Substance: MESNA
     Indication: Acute lymphocytic leukaemia
     Dosage: CYCLE 1, 3, 5, 7, DAYS 1-3
     Dates: start: 20231218
  2. METHYLPREDNISOLONE ACETATE [Suspect]
     Active Substance: METHYLPREDNISOLONE ACETATE
     Indication: Acute lymphocytic leukaemia
     Dosage: CYCLE 2, 4, 6, 8, 50 MG EVERY 12 HRS X 6 DOSES, DAYS 1-3?ROUTE OF ADMIN: INTRAVENOUS (NOT OTHERWISE
     Dates: start: 20231218
  3. VINCRISTINE SULFATE [Suspect]
     Active Substance: VINCRISTINE SULFATE
     Indication: Acute lymphocytic leukaemia
     Dosage: CYCLE 1, 3, 5, 7, 2 MG, DAY 1, DAY 8,?FORM OF ADMINISTRATION: SOLUTION FOR INJECTION?ROUTE OF ADMIN:
     Dates: start: 20231218
  4. INOTUZUMAB OZOGAMICIN [Suspect]
     Active Substance: INOTUZUMAB OZOGAMICIN
     Indication: Acute lymphocytic leukaemia
     Dosage: TOTAL DOSE: 0.9 MG/M2 DURING CYCLE 1 (0.6 MG/M2 D2, 0.3 MG/M2 D8)?ROUTE OF ADMIN: INTRAVENOUS (NOT O
     Dates: start: 20231219
  5. INOTUZUMAB OZOGAMICIN [Suspect]
     Active Substance: INOTUZUMAB OZOGAMICIN
     Dosage: TOTAL DOSE: 0.6 MG/M2 DURING CYCLES 2-4 (0.3 MG/M2 D2, 0.3 MG/M2 D8)?ROUTE OF ADMIN:  INTRAVENOUS (N
  6. CYTARABINE [Suspect]
     Active Substance: CYTARABINE
     Indication: Acute lymphocytic leukaemia
     Dosage: 0.5 G/M2/DOSE?CYCLE 2, 4, 6, 8, EVERY 12 HRS X 4 DOSES, DAYS 2, 3,DAYS 2, 3?FORM OF ADMIN: SOLUTION
     Dates: start: 20231218
  7. CYTARABINE [Suspect]
     Active Substance: CYTARABINE
     Dosage: CYCLE 1-4, DAY 2, DAY 8?ROUTE OF ADMIN: INTRATHECAL ( INT )
  8. RITUXIMAB [Suspect]
     Active Substance: RITUXIMAB
     Indication: Acute lymphocytic leukaemia
     Dosage: CYCLE 1-4, DAY 2, DAY 8?FORM OF ADMIN: SOLUTION FOR INFUSION?ROUTE OF ADMIN: INTRAVENOUS (NOT OTHERW
     Dates: start: 20231218
  9. CYCLOPHOSPHAMIDE [Suspect]
     Active Substance: CYCLOPHOSPHAMIDE
     Indication: Acute lymphocytic leukaemia
     Dosage: CYCLE 1, 3, 5, 7, EVERY 12 HRS X 6 DOSES, DAYS 1-3?ROUTE OF ADMIN: INTRAVENOUS (NOT OTHERWISE SPECIF
     Dates: start: 20231218
  10. METHOTREXATE SODIUM [Suspect]
     Active Substance: METHOTREXATE SODIUM
     Indication: Acute lymphocytic leukaemia
     Dosage: CYCLE 2, 4, 6, 8, DAY 1?ROUTE OF ADMIN: INTRAVENOUS (NOT OTHERWISE SPECIFIED) ( INT )
     Dates: start: 20231218
  11. METHOTREXATE SODIUM [Suspect]
     Active Substance: METHOTREXATE SODIUM
     Dosage: CYCLE 1-4, DAY 2, DAY 8?ROUTE OF ADMIN: INTRATHECAL ( INT )
  12. DEXAMETHASONE [Suspect]
     Active Substance: DEXAMETHASONE
     Indication: Acute lymphocytic leukaemia
     Dosage: IV OR PO, CYCLE 1, 3, 5, 7, DAYS 1-4, DAYS 11-14
     Dates: start: 20231218

REACTIONS (1)
  - Febrile neutropenia [Recovered/Resolved with Sequelae]

NARRATIVE: CASE EVENT DATE: 20240127
